FAERS Safety Report 15757471 (Version 1)
Quarter: 2018Q4

REPORT INFORMATION
  Report Type: Spontaneous
  Country: US (occurrence: US)
  Receive Date: 20181224
  Receipt Date: 20181224
  Transmission Date: 20190205
  Serious: No
  Sender: FDA-Public Use
  Company Number: US-NEUROCRINE BIOSCIENCES INC.-2018NBI03552

PATIENT
  Age: 80 Year
  Sex: Female

DRUGS (1)
  1. INGREZZA [Suspect]
     Active Substance: VALBENAZINE
     Indication: DYSTONIA
     Route: 048

REACTIONS (4)
  - Anxiety [Unknown]
  - Off label use [Unknown]
  - Heart rate increased [Unknown]
  - Psychomotor hyperactivity [Unknown]
